FAERS Safety Report 17533075 (Version 1)
Quarter: 2020Q1

REPORT INFORMATION
  Report Type: Spontaneous
  Country: CA (occurrence: CA)
  Receive Date: 20200312
  Receipt Date: 20200312
  Transmission Date: 20200409
  Serious: Yes (Other)
  Sender: FDA-Public Use
  Company Number: CA-MYLANLABS-2020M1027508

PATIENT
  Age: 27 Year
  Sex: Male

DRUGS (3)
  1. TRENBOLONE [Suspect]
     Active Substance: TRENBOLONE
     Indication: MUSCLE BUILDING THERAPY
     Dosage: UNK
     Route: 065
     Dates: start: 201707
  2. EXEMESTANE. [Suspect]
     Active Substance: EXEMESTANE
     Indication: MUSCLE BUILDING THERAPY
     Dosage: UNK
     Route: 065
     Dates: start: 201707
  3. TESTOSTERONE. [Suspect]
     Active Substance: TESTOSTERONE
     Indication: MUSCLE BUILDING THERAPY
     Dosage: UNK
     Route: 065
     Dates: start: 201707

REACTIONS (2)
  - Drug abuse [Unknown]
  - HIV test false positive [Unknown]
